FAERS Safety Report 4672938-1 (Version None)
Quarter: 2005Q2

REPORT INFORMATION
  Report Type: 
  Country: None (occurrence: None)
  Receive Date: 20050523
  Receipt Date: 20050509
  Transmission Date: 20051028
  Serious: Yes (Death, Hospitalization)
  Sender: FDA-Public Use
  Company Number: 0500058EN0020P

PATIENT
  Age: 1 Year
  Sex: Male
  Weight: 11 kg

DRUGS (7)
  1. ONCASPAR [Suspect]
     Indication: ACUTE LYMPHOCYTIC LEUKAEMIA
     Dosage: 1200 IU IM
     Route: 030
     Dates: start: 20040608, end: 20040608
  2. VINCRISTINE [Suspect]
     Indication: ACUTE LYMPHOCYTIC LEUKAEMIA
     Dosage: 0.7 MG Q7DAY
     Dates: start: 20020605, end: 20040709
  3. DEXAMETHASONE [Suspect]
     Indication: ACUTE LYMPHOCYTIC LEUKAEMIA
     Dosage: 3 MG QD
     Dates: start: 20040605, end: 20040707
  4. CYTARABINE [Suspect]
     Indication: ACUTE LYMPHOCYTIC LEUKAEMIA
     Dosage: 30 MG IT
     Route: 038
     Dates: start: 20020605, end: 20020605
  5. METHOTREXATE [Suspect]
     Indication: ACUTE LYMPHOCYTIC LEUKAEMIA
     Dosage: 8 MG IT Q7DAYS
     Route: 038
     Dates: start: 20040614, end: 20040614
  6. METHOTREXATE [Suspect]
     Indication: ACUTE LYMPHOCYTIC LEUKAEMIA
     Dosage: 8 MG IT Q7DAYS
     Route: 038
     Dates: start: 20040708, end: 20040708
  7. MERCAPTOPURINE [Suspect]
     Indication: ACUTE LYMPHOCYTIC LEUKAEMIA
     Dosage: 36 MG PO QD
     Route: 048
     Dates: start: 20040708, end: 20040711

REACTIONS (10)
  - ATRIAL THROMBOSIS [None]
  - BLOOD CULTURE POSITIVE [None]
  - CANDIDIASIS [None]
  - DISSEMINATED INTRAVASCULAR COAGULATION [None]
  - HEPATORENAL FAILURE [None]
  - HERPES SIMPLEX [None]
  - PAIN IN EXTREMITY [None]
  - SINUSITIS [None]
  - STAPHYLOCOCCAL INFECTION [None]
  - WOUND SECRETION [None]
